FAERS Safety Report 24689015 (Version 2)
Quarter: 2024Q4

REPORT INFORMATION
  Report Type: Spontaneous
  Country: DK (occurrence: DK)
  Receive Date: 20241203
  Receipt Date: 20241217
  Transmission Date: 20250115
  Serious: Yes (Life-Threatening)
  Sender: TAKEDA
  Company Number: DK-TAKEDA-2024TUS119847

PATIENT
  Age: 67 Year
  Sex: Male

DRUGS (1)
  1. HYQVIA [Suspect]
     Active Substance: HUMAN IMMUNOGLOBULIN G\HYALURONIDASE (HUMAN RECOMBINANT)
     Indication: Secondary immunodeficiency
     Dosage: 10 GRAM

REACTIONS (5)
  - Blood immunoglobulin A decreased [Recovered/Resolved]
  - Blood pressure decreased [Recovered/Resolved]
  - Cold sweat [Recovered/Resolved]
  - Pallor [Recovered/Resolved]
  - Nausea [Recovered/Resolved]

NARRATIVE: CASE EVENT DATE: 20241120
